FAERS Safety Report 10555087 (Version 1)
Quarter: 2014Q4

REPORT INFORMATION
  Report Type: Spontaneous
  Country: US (occurrence: US)
  Receive Date: 20141030
  Receipt Date: 20141030
  Transmission Date: 20150529
  Serious: Yes (Other)
  Sender: FDA-Public Use
  Company Number: US-PFIZER INC-2014295389

PATIENT
  Age: 62 Year
  Sex: Female
  Weight: 149.66 kg

DRUGS (9)
  1. TRAMADOL [Concomitant]
     Active Substance: TRAMADOL
     Dosage: 50 MG, DAILY AT BEDTIME
  2. REVATIO [Suspect]
     Active Substance: SILDENAFIL CITRATE
     Indication: PULMONARY HYPERTENSION
     Dosage: 20 MG, 3X/DAY
     Dates: start: 2008
  3. OMEPRAZOLE. [Concomitant]
     Active Substance: OMEPRAZOLE
     Dosage: 1 PILL ONCE A DAY
  4. CRANBERRY. [Concomitant]
     Active Substance: CRANBERRY
     Indication: CYSTITIS
     Dosage: 2 CAPSULES THREE TIMES DAILY
  5. THYROXINE [Concomitant]
     Active Substance: LEVOTHYROXINE
     Dosage: 150 MG, DAILY
  6. ETODOLAC. [Concomitant]
     Active Substance: ETODOLAC
     Indication: ANTIINFLAMMATORY THERAPY
     Dosage: 500 MG, 1X/DAY
  7. KLONOPIN [Concomitant]
     Active Substance: CLONAZEPAM
     Dosage: 2 MG, 1X/DAY (BEFORE BEDTIME)
  8. FUROSEMIDE. [Concomitant]
     Active Substance: FUROSEMIDE
     Dosage: 80 MG, DAILY
  9. ASPIRIN. [Concomitant]
     Active Substance: ASPIRIN
     Dosage: 650 MG (TWO 325 MG PILLS AT MIDDAY), DAILY

REACTIONS (10)
  - Ovarian mass [Unknown]
  - Pain [Not Recovered/Not Resolved]
  - Wheezing [Not Recovered/Not Resolved]
  - Pneumonia [Recovered/Resolved]
  - Asthma [Unknown]
  - Oesophageal spasm [Recovering/Resolving]
  - Gastrointestinal disorder [Unknown]
  - Pneumonia [Recovered/Resolved]
  - Uterine enlargement [Unknown]
  - Nausea [Not Recovered/Not Resolved]

NARRATIVE: CASE EVENT DATE: 2014
